FAERS Safety Report 6768835-8 (Version None)
Quarter: 2010Q2

REPORT INFORMATION
  Report Type: 
  Country: None (occurrence: None)
  Receive Date: 20100611
  Receipt Date: 20100531
  Transmission Date: 20101027
  Serious: Yes (Other)
  Sender: FDA-Public Use
  Company Number: 013272

PATIENT

DRUGS (3)
  1. LEVETIRACETAM [Suspect]
     Indication: EPILEPSY
     Dosage: (250 MG BID, FIRST WEEK) ; (500 MG BID, 2ND WEEK) ; (1000 MG BID, 3RD WEEK)
  2. LEVETIRACETAM [Suspect]
     Indication: EPILEPSY
     Dosage: (250 MG BID, FIRST WEEK) ; (500 MG BID, 2ND WEEK) ; (1000 MG BID, 3RD WEEK)
  3. LEVETIRACETAM [Suspect]
     Indication: EPILEPSY
     Dosage: (250 MG BID, FIRST WEEK) ; (500 MG BID, 2ND WEEK) ; (1000 MG BID, 3RD WEEK)

REACTIONS (1)
  - STATUS EPILEPTICUS [None]
